FAERS Safety Report 23387603 (Version 1)
Quarter: 2024Q1

REPORT INFORMATION
  Report Type: Spontaneous
  Country: DE (occurrence: None)
  Receive Date: 20240110
  Receipt Date: 20240110
  Transmission Date: 20240409
  Serious: Yes (Other)
  Sender: FDA-Public Use
  Company Number: 2024A000988

PATIENT
  Age: 62 Year
  Sex: Male
  Weight: 100 kg

DRUGS (1)
  1. DAPAGLIFLOZIN [Suspect]
     Active Substance: DAPAGLIFLOZIN
     Indication: Type 2 diabetes mellitus
     Dosage: 10 MG IN THE MORNING
     Route: 048
     Dates: start: 20231221, end: 20231225

REACTIONS (4)
  - Phimosis [Recovering/Resolving]
  - Genital burning sensation [Recovering/Resolving]
  - Pruritus genital [Recovering/Resolving]
  - Genital swelling [Recovering/Resolving]

NARRATIVE: CASE EVENT DATE: 20231221
